FAERS Safety Report 7917216-X (Version None)
Quarter: 2011Q4

REPORT INFORMATION
  Report Type: 
  Country: None (occurrence: None)
  Receive Date: 20111116
  Receipt Date: 20111101
  Transmission Date: 20120403
  Serious: Yes (Other)
  Sender: FDA-Public Use
  Company Number: PHHY2011CA29615

PATIENT
  Sex: Male

DRUGS (1)
  1. SANDOSTATIN LAR [Suspect]
     Indication: NEUROENDOCRINE TUMOUR
     Dosage: 30 MG, EVERY 4 WEEKS
     Route: 030
     Dates: start: 20110318

REACTIONS (12)
  - HYPERHIDROSIS [None]
  - DECREASED APPETITE [None]
  - FATIGUE [None]
  - DIARRHOEA HAEMORRHAGIC [None]
  - BLOOD PRESSURE SYSTOLIC INCREASED [None]
  - ALOPECIA [None]
  - NIGHT SWEATS [None]
  - CONSTIPATION [None]
  - HEPATIC PAIN [None]
  - WEIGHT DECREASED [None]
  - FLUSHING [None]
  - NAUSEA [None]
